FAERS Safety Report 8281088 (Version 2)
Quarter: 2012Q4

REPORT INFORMATION
  Report Type: Report from Study
  Country: US (occurrence: US)
  Receive Date: 20111208
  Receipt Date: 20121010
  Transmission Date: 20130627
  Serious: Yes (Death, Hospitalization)
  Sender: FDA-Public Use
  Company Number: US-ROCHE-1012832

PATIENT
  Age: 72 Year
  Sex: Male
  Weight: 120.1 kg

DRUGS (28)
  1. AVASTIN [Suspect]
     Indication: HEPATIC NEOPLASM MALIGNANT
     Dosage: LAST DOSE: 30 SEP 2011
     Route: 042
     Dates: start: 20110624, end: 20111013
  2. TARCEVA [Suspect]
     Indication: HEPATIC NEOPLASM MALIGNANT
     Dosage: LAST DOSE: 31 OCT 2011
     Route: 048
     Dates: start: 20110624, end: 20111013
  3. SORAFENIB [Suspect]
     Indication: HEPATIC NEOPLASM MALIGNANT
     Dosage: LAST DOSE: 10 NOV 2011
     Route: 048
     Dates: start: 20111029, end: 20111110
  4. ALPRAZOLAM [Concomitant]
     Indication: ANXIETY
     Route: 065
     Dates: start: 20110624, end: 20111111
  5. ASPIRIN [Concomitant]
     Indication: HYPERLIPIDAEMIA
     Route: 048
     Dates: end: 20111111
  6. FAMOTIDINE [Concomitant]
     Indication: GASTROOESOPHAGEAL REFLUX DISEASE
     Route: 048
     Dates: start: 20110422, end: 20111111
  7. FERROUS SULFATE [Concomitant]
     Indication: ANAEMIA
     Route: 048
     Dates: start: 20110211, end: 20111111
  8. FUROSEMIDE [Concomitant]
     Indication: HYPERTENSION
     Route: 048
     Dates: start: 20110407, end: 20111111
  9. HYDROXIZINE CHLORIDE [Concomitant]
     Route: 048
     Dates: start: 20110331, end: 20111111
  10. ISOSORBIDE MONONITRATE [Concomitant]
     Indication: CORONARY ARTERY DISEASE
     Route: 048
     Dates: end: 20111111
  11. METOLAZONE [Concomitant]
     Route: 048
     Dates: end: 20111111
  12. METOPROLOL [Concomitant]
     Route: 048
     Dates: end: 20111111
  13. MULTIVITAMIN NOS [Concomitant]
     Route: 065
     Dates: end: 20111111
  14. NYSTATIN [Concomitant]
     Route: 061
     Dates: end: 20111111
  15. PIOGLITAZONE [Concomitant]
     Route: 048
     Dates: end: 20111111
  16. SIMVASTATIN [Concomitant]
     Route: 048
     Dates: end: 20111111
  17. TEMAZEPAM [Concomitant]
     Route: 048
     Dates: end: 20111111
  18. DOXYCYCLINE [Concomitant]
     Indication: DERMATITIS ACNEIFORM
     Route: 048
     Dates: start: 20110707, end: 20111111
  19. CORTISONE CREAM [Concomitant]
     Route: 061
     Dates: start: 20110707, end: 20111111
  20. KLONOPIN [Concomitant]
     Indication: ANXIETY
     Route: 048
     Dates: start: 20110701, end: 20111111
  21. LOTRISONE [Concomitant]
     Indication: FUNGAL INFECTION
     Route: 061
     Dates: start: 20110708, end: 20111111
  22. LOVENOX [Concomitant]
     Route: 065
     Dates: start: 20110716, end: 20111111
  23. SODIUM CHLORIDE [Concomitant]
     Indication: DRY EYE
  24. SPIRONOLACTONE [Concomitant]
     Route: 048
  25. HEPARIN [Concomitant]
     Indication: DEEP VEIN THROMBOSIS
     Route: 058
     Dates: start: 20110709, end: 20110715
  26. ENOXAPARIN [Concomitant]
     Indication: DEEP VEIN THROMBOSIS
     Route: 058
     Dates: start: 20110716, end: 20111111
  27. BISMUTH [Concomitant]
     Indication: DIARRHOEA
     Route: 048
     Dates: start: 20110918, end: 20110921
  28. BISMUTH [Concomitant]
     Route: 048
     Dates: start: 20111004, end: 20111013

REACTIONS (1)
  - Cardiac arrest [Fatal]
